FAERS Safety Report 5812625-7 (Version None)
Quarter: 2008Q3

REPORT INFORMATION
  Report Type: 
  Country: None (occurrence: None)
  Receive Date: 20080717
  Receipt Date: 20080711
  Transmission Date: 20090109
  Serious: Yes (Other)
  Sender: FDA-Public Use
  Company Number: BR-ASTRAZENECA-2008UW14060

PATIENT
  Age: 57 Year
  Sex: Male
  Weight: 76 kg

DRUGS (1)
  1. SYMBICORT [Suspect]
     Indication: ALLERGIC BRONCHITIS
     Dosage: 160/4.5
     Route: 055
     Dates: start: 20080709

REACTIONS (1)
  - DYSPNOEA [None]
